FAERS Safety Report 5908207-9 (Version None)
Quarter: 2008Q4

REPORT INFORMATION
  Report Type: 
  Country: None (occurrence: None)
  Receive Date: 20081006
  Receipt Date: 20080926
  Transmission Date: 20090506
  Serious: Yes (Other)
  Sender: FDA-Public Use
  Company Number: GB-RANBAXY-2008RR-18359

PATIENT
  Age: 63 Year
  Sex: Female
  Weight: 80 kg

DRUGS (8)
  1. ACETAMINOPHEN [Suspect]
     Indication: PAIN
     Dosage: 1 G, UNK
     Route: 048
  2. ASPIRIN [Concomitant]
     Dosage: 75 MG, QD
  3. AVANDAMET [Concomitant]
     Indication: DIABETES MELLITUS
     Dosage: 1 DF, BID
     Route: 048
  4. FUROSEMIDE [Concomitant]
     Dosage: 40 MG, QD
     Route: 048
  5. LEVOTHYROXINE SODIUM [Concomitant]
     Indication: HYPOTHYROIDISM
     Dosage: 50 UG, QD
     Route: 048
  6. LISINOPRIL [Concomitant]
     Indication: BLOOD PRESSURE INCREASED
     Dosage: 50 MG, QD
     Route: 048
  7. MS CONTIN [Concomitant]
     Dosage: 10 MG, BID
  8. SIMVASTATIN [Concomitant]
     Dosage: 40 MG, QD

REACTIONS (1)
  - SOMNOLENCE [None]
